FAERS Safety Report 21212905 (Version 2)
Quarter: 2022Q3

REPORT INFORMATION
  Report Type: Spontaneous
  Country: DE (occurrence: DE)
  Receive Date: 20220815
  Receipt Date: 20220824
  Transmission Date: 20221027
  Serious: Yes (Hospitalization, Other)
  Sender: FDA-Public Use
  Company Number: DE-VERTEX PHARMACEUTICALS-2022-010226

PATIENT
  Age: 23 Year
  Sex: Female
  Weight: 51 kg

DRUGS (19)
  1. ELEXACAFTOR\IVACAFTOR\TEZACAFTOR [Suspect]
     Active Substance: ELEXACAFTOR\IVACAFTOR\TEZACAFTOR
     Indication: Cystic fibrosis
     Dosage: UNK UNK, QD
     Route: 048
     Dates: start: 20201023, end: 20210202
  2. ELEXACAFTOR\IVACAFTOR\TEZACAFTOR [Suspect]
     Active Substance: ELEXACAFTOR\IVACAFTOR\TEZACAFTOR
     Dosage: TABLET EVERY TWO DAYS
     Route: 048
     Dates: start: 20210202, end: 202204
  3. KALYDECO [Suspect]
     Active Substance: IVACAFTOR
     Indication: Cystic fibrosis
     Dosage: UNK, QD
     Route: 048
     Dates: start: 20201023, end: 202204
  4. PANCRELIPASE [Concomitant]
     Active Substance: PANCRELIPASE
     Indication: Cystic fibrosis
     Dosage: THOUSAND IU (MORNING 25, NOON 25 AND EVENING 25)
     Route: 048
  5. URSODIOL [Concomitant]
     Active Substance: URSODIOL
     Indication: Cystic fibrosis
     Dosage: 500 MILLIGRAM (IN MORNING AND IN EVENING)
     Route: 048
  6. URSODIOL [Concomitant]
     Active Substance: URSODIOL
     Dosage: 1000 MILLIGRAM
  7. AZITHROMYCIN [Concomitant]
     Active Substance: AZITHROMYCIN
     Dosage: MON-WED-FRI
  8. LANTUS [Concomitant]
     Active Substance: INSULIN GLARGINE
     Dosage: 100 UNITS/ML SOLUTION FOR INJECTION IN CARTRIDGE 3 ML, AT NIGHT
  9. FENOTEROL HYDROBROMIDE\IPRATROPIUM BROMIDE [Concomitant]
     Active Substance: FENOTEROL HYDROBROMIDE\IPRATROPIUM BROMIDE
     Indication: Dyspnoea
     Dosage: 1 IN MORNING, 1 IN EVENING, BEFORE INHALATION AND IN CASE OF DYSPNEA
  10. FENOTEROL HYDROBROMIDE\IPRATROPIUM BROMIDE [Concomitant]
     Active Substance: FENOTEROL HYDROBROMIDE\IPRATROPIUM BROMIDE
     Indication: Cystic fibrosis
  11. SODIUM CHLORIDE [Concomitant]
     Active Substance: SODIUM CHLORIDE
  12. PANCRELIPASE [Concomitant]
     Active Substance: PANCRELIPASE
  13. TOBI [Concomitant]
     Active Substance: TOBRAMYCIN
     Dosage: FOR FOUR WEEKS AT A TIME, IN MORNING AND IN EVENING
     Route: 055
  14. VIGANTOL [Concomitant]
     Indication: Cystic fibrosis
     Dosage: 1,000 IU VITAMIN D3, IN MORNING AND IN EVENING
  15. GLYCOPYRRONIUM\INDACATEROL [Concomitant]
     Active Substance: GLYCOPYRRONIUM\INDACATEROL
     Dosage: 85 MICROGRAMS/43 MICROGRAMS, IN MORNING
  16. KA-VIT [Concomitant]
     Dosage: 5 DROPS PER WEEK, IN MORNING
  17. OLODATEROL HYDROCHLORIDE\TIOTROPIUM BROMIDE MONOHYDRATE [Concomitant]
     Active Substance: OLODATEROL HYDROCHLORIDE\TIOTROPIUM BROMIDE MONOHYDRATE
     Indication: Cystic fibrosis
     Dosage: UNK, QD
  18. SULTANOL [Concomitant]
     Active Substance: ALBUTEROL SULFATE
     Indication: Cystic fibrosis
     Route: 055
  19. PULMOZYME [Concomitant]
     Active Substance: DORNASE ALFA
     Indication: Cystic fibrosis
     Dosage: 2,500 U/2.5 ML SOLUTION FOR NEBULIZER, IN MORNING
     Route: 055

REACTIONS (4)
  - Hepatitis [Recovered/Resolved]
  - Drug-induced liver injury [Unknown]
  - Transaminases increased [Recovered/Resolved]
  - Rash [Recovered/Resolved]

NARRATIVE: CASE EVENT DATE: 20201001
